FAERS Safety Report 10572910 (Version 1)
Quarter: 2014Q4

REPORT INFORMATION
  Report Type: Spontaneous
  Country: US (occurrence: None)
  Receive Date: 20141107
  Receipt Date: 20141107
  Transmission Date: 20150529
  Serious: Yes (Hospitalization)
  Sender: FDA-Public Use
  Company Number: None

PATIENT
  Age: 3 Year
  Sex: Female
  Weight: 13 kg

DRUGS (5)
  1. DEXAMETHASONE. [Suspect]
     Active Substance: DEXAMETHASONE
  2. PEG-L-ASPARAGINASE ( PEGASPARGASE, ONCOSPAR) [Concomitant]
  3. VINCRISTINE SULFATE. [Concomitant]
     Active Substance: VINCRISTINE SULFATE
  4. CYTARABINE. [Suspect]
     Active Substance: CYTARABINE
  5. METHOTREXATE [Suspect]
     Active Substance: METHOTREXATE

REACTIONS (26)
  - Thrombocytopenia [None]
  - Infection [None]
  - Hypovolaemia [None]
  - Immunodeficiency [None]
  - Photophobia [None]
  - Traumatic lumbar puncture [None]
  - Blood lactic acid increased [None]
  - Diarrhoea [None]
  - Decreased appetite [None]
  - Disseminated intravascular coagulation [None]
  - Lethargy [None]
  - Headache [None]
  - Anaemia [None]
  - Sinus tachycardia [None]
  - Septic shock [None]
  - No therapeutic response [None]
  - Pulse pressure increased [None]
  - Neutrophil count decreased [None]
  - Urosepsis [None]
  - Coagulation test abnormal [None]
  - Fluid overload [None]
  - Abdominal pain upper [None]
  - Constipation [None]
  - Liver function test abnormal [None]
  - Escherichia test positive [None]
  - Fluid retention [None]

NARRATIVE: CASE EVENT DATE: 20140930
